FAERS Safety Report 10195412 (Version 2)
Quarter: 2014Q2

REPORT INFORMATION
  Report Type: Spontaneous
  Country: JP (occurrence: JP)
  Receive Date: 20140526
  Receipt Date: 20140602
  Transmission Date: 20141212
  Serious: Yes (Death, Life-Threatening, Other)
  Sender: FDA-Public Use
  Company Number: PHHY2014JP061537

PATIENT
  Sex: 0

DRUGS (3)
  1. ULTIBRO BREEZHALER [Suspect]
     Indication: CHRONIC OBSTRUCTIVE PULMONARY DISEASE
     Dosage: 1 DF, QD
     Route: 055
     Dates: start: 20140414, end: 20140427
  2. TULOBUTEROL [Concomitant]
     Dosage: UNK
     Dates: start: 20140320
  3. ZOSYN [Concomitant]
     Dosage: UNK
     Route: 062
     Dates: start: 20140428

REACTIONS (10)
  - Cardiac failure [Fatal]
  - Blood pressure decreased [Fatal]
  - Chronic obstructive pulmonary disease [Fatal]
  - Dyspnoea [Fatal]
  - Atrial fibrillation [Unknown]
  - Pneumonia [Unknown]
  - Pyrexia [Unknown]
  - Pleural effusion [Recovered/Resolved]
  - Nausea [Unknown]
  - Decreased appetite [Unknown]
